FAERS Safety Report 9908953 (Version 1)
Quarter: 2014Q1

REPORT INFORMATION
  Report Type: Spontaneous
  Country: US (occurrence: US)
  Receive Date: 20140219
  Receipt Date: 20140219
  Transmission Date: 20141002
  Serious: Yes (Death)
  Sender: FDA-Public Use
  Company Number: US-BANPHARM-20142158

PATIENT
  Age: 71 Year
  Sex: Female

DRUGS (5)
  1. IBUPROFEN UNKNOWN PRODUCT [Suspect]
     Route: 048
  2. DRUG UNKNOWN [Suspect]
  3. ACETAMINOPHEN [Concomitant]
  4. PSEUDOEPHEDRINE [Concomitant]
  5. FEXOFENADINE [Concomitant]

REACTIONS (1)
  - Death [Fatal]
